FAERS Safety Report 9975137 (Version 1)
Quarter: 2014Q1

REPORT INFORMATION
  Report Type: Report from Study
  Country: US (occurrence: US)
  Receive Date: 20140306
  Receipt Date: 20140306
  Transmission Date: 20141002
  Serious: No
  Sender: FDA-Public Use
  Company Number: US-ABBVIE-13P-163-1161108-00

PATIENT
  Age: 22 Year
  Sex: Male

DRUGS (7)
  1. HUMIRA [Suspect]
     Indication: CROHN^S DISEASE
     Dates: start: 20130815
  2. IRON [Concomitant]
     Indication: ANAEMIA
     Dosage: TAKE IT FOR A WHILE, THEN STOP, THEN TAKE IT AGAIN WHEN START FEELING BAD
  3. PREDNISONE [Concomitant]
     Indication: PRODUCT USED FOR UNKNOWN INDICATION
     Dosage: WEANED OFF BUT STARTED IT PRE-HUMIRA
  4. PREDNISONE [Concomitant]
     Dosage: WEANED TO FOR A WEEK
  5. PREDNISONE [Concomitant]
     Dosage: WEANED TO FOR A WEEK
  6. PREDNISONE [Concomitant]
     Dosage: WEANED TO FOR A WEEK
  7. PREDNISONE [Concomitant]
     Dosage: WEANED TO FOR A WEEK

REACTIONS (6)
  - Decreased appetite [Not Recovered/Not Resolved]
  - Abdominal pain [Not Recovered/Not Resolved]
  - Nausea [Not Recovered/Not Resolved]
  - Headache [Not Recovered/Not Resolved]
  - Somnolence [Not Recovered/Not Resolved]
  - Haematochezia [Not Recovered/Not Resolved]
